FAERS Safety Report 4283580-9 (Version None)
Quarter: 2004Q1

REPORT INFORMATION
  Report Type: 
  Country: None (occurrence: None)
  Receive Date: 20040121
  Receipt Date: 20030917
  Transmission Date: 20041129
  Serious: Yes (Hospitalization)
  Sender: FDA-Public Use
  Company Number: A03200302180

PATIENT
  Age: 88 Year
  Sex: Female

DRUGS (8)
  1. PLAVIX [Suspect]
     Indication: CEREBROVASCULAR ACCIDENT
     Dosage: 75 MG QD - ORAL
     Route: 048
     Dates: start: 20030101, end: 20031001
  2. PLAVIX [Suspect]
     Indication: THROMBOSIS PROPHYLAXIS
     Dosage: 75 MG QD - ORAL
     Route: 048
     Dates: start: 20030101, end: 20031001
  3. ALBUTEROL [Concomitant]
  4. DILTIAZEM HYDROCHLORIDE [Concomitant]
  5. FUROSEMIDE [Concomitant]
  6. PARACETAMOL [Concomitant]
  7. VITAMIN C [Concomitant]
  8. GARLIC [Concomitant]

REACTIONS (4)
  - DYSPNOEA EXACERBATED [None]
  - PARALYSIS [None]
  - TRAUMATIC INTRACRANIAL HAEMORRHAGE [None]
  - VOMITING [None]
